FAERS Safety Report 9452980 (Version 3)
Quarter: 2013Q3

REPORT INFORMATION
  Report Type: Report from Study
  Country: US (occurrence: US)
  Receive Date: 20130812
  Receipt Date: 20130925
  Transmission Date: 20140515
  Serious: Yes (Death)
  Sender: FDA-Public Use
  Company Number: US-ROCHE-1259914

PATIENT
  Age: 55 Year
  Sex: Female

DRUGS (25)
  1. RITUXAN [Suspect]
     Indication: LYMPHOMA
     Dosage: CYCLE 1 CHOP/R-600MG IV
     Route: 042
     Dates: start: 20130422
  2. RITUXAN [Suspect]
     Indication: B-CELL LYMPHOMA
     Route: 042
     Dates: start: 20130516
  3. RITUXAN [Suspect]
     Route: 042
     Dates: start: 20130606
  4. TYLENOL [Concomitant]
     Route: 048
     Dates: start: 20130422
  5. TYLENOL [Concomitant]
     Route: 048
     Dates: start: 20130516
  6. TYLENOL [Concomitant]
     Route: 048
     Dates: start: 20130606
  7. BENADRYL (UNITED STATES) [Concomitant]
     Route: 048
     Dates: start: 20130422
  8. BENADRYL (UNITED STATES) [Concomitant]
     Route: 048
     Dates: start: 20130515
  9. BENADRYL (UNITED STATES) [Concomitant]
     Route: 048
     Dates: start: 20130606
  10. ZOFRAN [Concomitant]
     Route: 065
     Dates: start: 20130422
  11. ZOFRAN [Concomitant]
     Route: 065
     Dates: start: 20130515
  12. ZOFRAN [Concomitant]
     Route: 065
     Dates: start: 20130606
  13. DECADRON [Concomitant]
     Route: 042
     Dates: start: 20130422
  14. DECADRON [Concomitant]
     Route: 042
     Dates: start: 20130516
  15. DECADRON [Concomitant]
     Route: 042
     Dates: start: 20130606
  16. ONCOVIN [Concomitant]
     Route: 042
     Dates: start: 20130422
  17. ONCOVIN [Concomitant]
     Route: 042
     Dates: start: 20130516
  18. ONCOVIN [Concomitant]
     Route: 042
     Dates: start: 20130606
  19. CYTOXAN [Concomitant]
     Route: 042
     Dates: start: 20130422
  20. CYTOXAN [Concomitant]
     Route: 042
     Dates: start: 20130516
  21. CYTOXAN [Concomitant]
     Route: 042
     Dates: start: 20130606
  22. ADRIAMYCIN [Concomitant]
     Route: 042
     Dates: start: 20130422
  23. ADRIAMYCIN [Concomitant]
     Route: 042
     Dates: start: 20130516
  24. ADRIAMYCIN [Concomitant]
     Route: 042
     Dates: start: 20130606
  25. MORPHINE [Concomitant]
     Route: 042
     Dates: start: 20130606

REACTIONS (3)
  - Sepsis [Fatal]
  - Bacteraemia [Fatal]
  - Pain [Unknown]
